FAERS Safety Report 10896955 (Version 3)
Quarter: 2015Q2

REPORT INFORMATION
  Report Type: Spontaneous
  Country: GB (occurrence: GB)
  Receive Date: 20150309
  Receipt Date: 20150525
  Transmission Date: 20150821
  Serious: Yes (Hospitalization, Other)
  Sender: FDA-Public Use
  Company Number: PHFR2015GB001969

PATIENT
  Age: 52 Year
  Sex: Male

DRUGS (4)
  1. CLOZARIL [Suspect]
     Active Substance: CLOZAPINE
     Indication: SCHIZOPHRENIA
     Dosage: UNK
     Route: 048
     Dates: start: 20070124
  2. CLOZARIL [Suspect]
     Active Substance: CLOZAPINE
     Dosage: 200 OT, QD
     Route: 048
     Dates: start: 201503
  3. DULOXETINE [Concomitant]
     Active Substance: DULOXETINE
     Indication: DEPRESSION
     Dosage: 60 MG, QD
     Route: 065
  4. ARIPIPRAZOLE. [Concomitant]
     Active Substance: ARIPIPRAZOLE
     Indication: SCHIZOPHRENIA
     Dosage: 30 MG, QD
     Route: 048

REACTIONS (4)
  - Gastric disorder [Recovering/Resolving]
  - Neutrophil count increased [Unknown]
  - Dysphagia [Unknown]
  - Nasal cavity cancer [Recovering/Resolving]

NARRATIVE: CASE EVENT DATE: 201412
